FAERS Safety Report 13800643 (Version 2)
Quarter: 2018Q1

REPORT INFORMATION
  Report Type: Spontaneous
  Country: JP (occurrence: JP)
  Receive Date: 20170727
  Receipt Date: 20180301
  Transmission Date: 20180508
  Serious: Yes (Hospitalization)
  Sender: FDA-Public Use
  Company Number: JP-ACTELION-A-CH2017-156781

PATIENT
  Age: 27 Year
  Sex: Male

DRUGS (8)
  1. OPSUMIT [Suspect]
     Active Substance: MACITENTAN
     Indication: PULMONARY ARTERIAL HYPERTENSION
     Dosage: 10 MG, UNK
     Route: 048
     Dates: start: 20151014
  2. ALDACTONE A [Suspect]
     Active Substance: SPIRONOLACTONE
     Indication: PULMONARY ARTERIAL HYPERTENSION
     Dosage: 25 MG, BID
     Route: 048
     Dates: start: 20110728
  3. LASIX [Concomitant]
     Active Substance: FUROSEMIDE
  4. LANIRAPID [Concomitant]
     Active Substance: METILDIGOXIN
  5. BUFFERIN A [Concomitant]
  6. RENIVACE [Suspect]
     Active Substance: ENALAPRIL
     Indication: PULMONARY ARTERIAL HYPERTENSION
     Dosage: 2.5 MG, BID
     Route: 048
     Dates: start: 20110728
  7. SAMSCA [Concomitant]
     Active Substance: TOLVAPTAN
  8. SALOBEL [Concomitant]
     Active Substance: ALLOPURINOL

REACTIONS (2)
  - Gastric haemorrhage [Recovered/Resolved]
  - Transfusion [Unknown]

NARRATIVE: CASE EVENT DATE: 20170306
